FAERS Safety Report 6320951-0 (Version None)
Quarter: 2009Q3

REPORT INFORMATION
  Report Type: 
  Country: None (occurrence: None)
  Receive Date: 20090822
  Receipt Date: 20081231
  Transmission Date: 20100115
  Serious: No
  Sender: FDA-Public Use
  Company Number: US-ABBOTT-08P-163-0495410-00

PATIENT
  Sex: Male

DRUGS (12)
  1. NIASPAN [Suspect]
     Indication: DRUG USE FOR UNKNOWN INDICATION
     Dosage: 500 MG EVERY NIGHT
     Dates: start: 20081217, end: 20081220
  2. GENGRAF [Concomitant]
     Indication: DRUG USE FOR UNKNOWN INDICATION
     Dosage: 25 MG X 2 PILLS 2X DAILY
     Route: 048
  3. LASIX [Concomitant]
     Indication: DRUG USE FOR UNKNOWN INDICATION
     Route: 048
  4. ALLOPURINOL [Concomitant]
     Indication: DRUG USE FOR UNKNOWN INDICATION
     Route: 048
  5. SYNTHROID [Concomitant]
     Indication: DRUG USE FOR UNKNOWN INDICATION
     Route: 048
  6. ASPIRIN [Concomitant]
     Indication: DRUG USE FOR UNKNOWN INDICATION
     Route: 048
  7. MULTI-VITAMINS [Concomitant]
     Indication: DRUG USE FOR UNKNOWN INDICATION
     Route: 048
  8. METOPROLOL [Concomitant]
     Indication: DRUG USE FOR UNKNOWN INDICATION
     Dosage: SR
     Route: 048
  9. TIKOSYN [Concomitant]
     Indication: ARRHYTHMIA PROPHYLAXIS
     Route: 048
  10. DARVOCET WITH FLEXIRIL [Concomitant]
     Indication: DRUG USE FOR UNKNOWN INDICATION
     Dosage: AS REQUIRED
     Route: 048
  11. VERIMYST NASAL SPRAY [Concomitant]
     Indication: DRUG USE FOR UNKNOWN INDICATION
     Dosage: 2 SQUIRTS IN EACH NOSTRIL DAILY
     Route: 045
  12. METROGEL [Concomitant]
     Indication: DRUG USE FOR UNKNOWN INDICATION
     Dosage: TOPICALLY TO FACE DAILY
     Route: 061

REACTIONS (2)
  - ABDOMINAL PAIN [None]
  - FLUSHING [None]
